FAERS Safety Report 24605419 (Version 2)
Quarter: 2025Q2

REPORT INFORMATION
  Report Type: Spontaneous
  Country: US (occurrence: US)
  Receive Date: 20241111
  Receipt Date: 20250510
  Transmission Date: 20250716
  Serious: No
  Sender: SANOFI AVENTIS
  Company Number: US-SA-2024SA323256

PATIENT
  Age: 59 Year
  Sex: Female
  Weight: 68.64 kg

DRUGS (3)
  1. DUPIXENT [Suspect]
     Active Substance: DUPILUMAB
     Indication: Dermatitis atopic
     Dosage: 300 MG, QOW
     Route: 058
     Dates: start: 2022
  2. DUPIXENT [Suspect]
     Active Substance: DUPILUMAB
     Dosage: 300 MG, QOW
     Route: 058
     Dates: start: 202405
  3. DUPIXENT [Suspect]
     Active Substance: DUPILUMAB
     Dosage: 300MG ONCE A MONTH
     Route: 058

REACTIONS (13)
  - Palpitations [Recovering/Resolving]
  - Dyspnoea [Recovering/Resolving]
  - Lip disorder [Not Recovered/Not Resolved]
  - Bone pain [Recovering/Resolving]
  - Vision blurred [Not Recovered/Not Resolved]
  - Sleep disorder due to general medical condition, insomnia type [Not Recovered/Not Resolved]
  - Loss of personal independence in daily activities [Not Recovered/Not Resolved]
  - Swelling of eyelid [Not Recovered/Not Resolved]
  - Balance disorder [Recovering/Resolving]
  - Urticaria [Not Recovered/Not Resolved]
  - Lip erythema [Not Recovered/Not Resolved]
  - Arthralgia [Recovering/Resolving]
  - Inappropriate schedule of product administration [Unknown]

NARRATIVE: CASE EVENT DATE: 20220101
